FAERS Safety Report 5126704-3 (Version None)
Quarter: 2006Q4

REPORT INFORMATION
  Report Type: 
  Country: None (occurrence: None)
  Receive Date: 20061011
  Receipt Date: 20061011
  Transmission Date: 20070319
  Serious: Yes (Hospitalization)
  Sender: FDA-Public Use
  Company Number: None

PATIENT
  Sex: Female
  Weight: 57 kg

DRUGS (3)
  1. CISPLATIN [Suspect]
     Dosage: 77 MG
  2. DOXORUBICIN HCL [Suspect]
     Dosage: 69 MG
  3. PACLITAXEL [Suspect]
     Dosage: 245 MG

REACTIONS (1)
  - NEUTROPENIA [None]
